FAERS Safety Report 7522441-6 (Version None)
Quarter: 2011Q2

REPORT INFORMATION
  Report Type: 
  Country: None (occurrence: None)
  Receive Date: 20110603
  Receipt Date: 20110525
  Transmission Date: 20111010
  Serious: Yes (Hospitalization)
  Sender: FDA-Public Use
  Company Number: BE-ABBOTT-11P-013-0728675-00

PATIENT
  Sex: Female

DRUGS (11)
  1. HUMIRA [Suspect]
     Indication: CROHN'S DISEASE
     Dosage: BASELINE
     Route: 058
     Dates: start: 20080916, end: 20080916
  2. HUMIRA [Suspect]
     Route: 058
  3. EPSIPAM [Concomitant]
     Indication: FIBROMYALGIA
     Dates: start: 20080606
  4. ZOLPIDEM [Concomitant]
     Indication: INSOMNIA
  5. REDOMEX [Concomitant]
     Indication: NEURALGIA
     Dates: start: 20090101
  6. METHOTREXATE [Concomitant]
     Indication: CROHN'S DISEASE
     Dates: start: 20050725, end: 20090317
  7. METHOTREXATE [Concomitant]
     Dates: start: 20090318, end: 20100101
  8. TRAMADOL HYDROCHLORIDE [Concomitant]
     Indication: NEURALGIA
     Dates: start: 20090507
  9. HUMIRA [Suspect]
     Dosage: WEEK 2
     Route: 058
  10. SIPRALEXA [Concomitant]
     Indication: FIBROMYALGIA
     Dates: start: 20080101
  11. METHOTREXATE [Concomitant]

REACTIONS (6)
  - PULMONARY EMBOLISM [None]
  - SUBCLAVIAN ARTERY THROMBOSIS [None]
  - CORONARY ARTERY EMBOLISM [None]
  - TUMOUR EMBOLISM [None]
  - EMBOLISM [None]
  - PULMONARY THROMBOSIS [None]
